FAERS Safety Report 26038709 (Version 1)
Quarter: 2025Q4

REPORT INFORMATION
  Report Type: Spontaneous
  Country: EU (occurrence: EU)
  Receive Date: 20251113
  Receipt Date: 20251113
  Transmission Date: 20260118
  Serious: Yes (Hospitalization, Other)
  Sender: AUROBINDO
  Company Number: EU-AFSSAPS-TS2025001117

PATIENT
  Age: 76 Year
  Sex: Male

DRUGS (4)
  1. NAPROXEN [Suspect]
     Active Substance: NAPROXEN
     Indication: Product used for unknown indication
     Dosage: 8800 MILLIGRAM, ONCE A DAY
     Route: 048
     Dates: start: 20251018, end: 20251018
  2. NEFOPAM [Suspect]
     Active Substance: NEFOPAM
     Indication: Product used for unknown indication
     Dosage: 900 MILLIGRAM, ONCE A DAY
     Route: 048
     Dates: start: 20251018, end: 20251018
  3. SKENAN [Suspect]
     Active Substance: MORPHINE SULFATE
     Indication: Poisoning deliberate
     Dosage: 560 MILLIGRAM, ONCE A DAY
     Route: 048
     Dates: start: 20251018, end: 20251018
  4. ACETAMINOPHEN\OPIUM [Suspect]
     Active Substance: ACETAMINOPHEN\OPIUM
     Indication: Poisoning deliberate
     Dosage: 48 DOSAGE FORM, ONCE A DAY
     Route: 048
     Dates: start: 20251018, end: 20251018

REACTIONS (5)
  - Acute kidney injury [Recovering/Resolving]
  - Rhabdomyolysis [Recovering/Resolving]
  - Somnolence [Recovering/Resolving]
  - Miosis [Recovering/Resolving]
  - Bradypnoea [Recovering/Resolving]

NARRATIVE: CASE EVENT DATE: 20251019
